FAERS Safety Report 16229446 (Version 2)
Quarter: 2019Q2

REPORT INFORMATION
  Report Type: Spontaneous
  Country: US (occurrence: US)
  Receive Date: 20190423
  Receipt Date: 20190510
  Transmission Date: 20190711
  Serious: Yes (Hospitalization, Other)
  Sender: FDA-Public Use
  Company Number: US-GILEAD-2019-0403544

PATIENT
  Age: 64 Year
  Sex: Male
  Weight: 92.9 kg

DRUGS (14)
  1. LABETALOL [Concomitant]
     Active Substance: LABETALOL\LABETALOL HYDROCHLORIDE
  2. LITHIUM. [Concomitant]
     Active Substance: LITHIUM
  3. OXYCODONE [Suspect]
     Active Substance: OXYCODONE
     Indication: PRODUCT USED FOR UNKNOWN INDICATION
     Dosage: UNK
     Route: 048
  4. LACTULOSE. [Concomitant]
     Active Substance: LACTULOSE
  5. TRANXENE [Concomitant]
     Active Substance: CLORAZEPATE DIPOTASSIUM
  6. FERROUS SULFATE. [Concomitant]
     Active Substance: FERROUS SULFATE
  7. SYNTHROID [Concomitant]
     Active Substance: LEVOTHYROXINE SODIUM
  8. VOSEVI [Suspect]
     Active Substance: SOFOSBUVIR\VELPATASVIR\VOXILAPREVIR
     Indication: HEPATITIS C
     Dosage: UNK, STOPPED BRIEFLY DURING HOSPITALIZATION FROM 12-APR-2019 TO 15-APR-2019
     Route: 065
     Dates: start: 20190407, end: 20190412
  9. LEXAPRO [Concomitant]
     Active Substance: ESCITALOPRAM OXALATE
  10. LASIX [Concomitant]
     Active Substance: FUROSEMIDE
  11. TRAZODONE [Concomitant]
     Active Substance: TRAZODONE HYDROCHLORIDE
  12. NEURONTIN [Concomitant]
     Active Substance: GABAPENTIN
  13. PROTONIX [OMEPRAZOLE] [Concomitant]
     Active Substance: OMEPRAZOLE
  14. XIFAXAN [Concomitant]
     Active Substance: RIFAXIMIN

REACTIONS (2)
  - Overdose [Unknown]
  - Loss of consciousness [Unknown]

NARRATIVE: CASE EVENT DATE: 201904
